FAERS Safety Report 25653632 (Version 1)
Quarter: 2025Q3

REPORT INFORMATION
  Report Type: Other
  Country: CN (occurrence: CN)
  Receive Date: 20250807
  Receipt Date: 20250807
  Transmission Date: 20251020
  Serious: Yes (Other)
  Sender: QILU PHARMACEUTICAL
  Company Number: CN-QILU PHARMACEUTICAL CO.LTD.-QLU-000185-2025

PATIENT
  Age: 64 Year
  Sex: Female
  Weight: 63.9 kg

DRUGS (4)
  1. TENOFOVIR DISOPROXIL FUMARATE [Suspect]
     Active Substance: TENOFOVIR DISOPROXIL FUMARATE
     Indication: Chronic hepatitis B
     Dosage: 0.3 G ONCE DAILY
     Route: 048
     Dates: start: 20250321
  2. PEGINTERFERON ALFA-2B [Suspect]
     Active Substance: PEGINTERFERON ALFA-2B
     Indication: Chronic hepatitis B
     Dosage: 180 UG ONCE EVERY 7 DAYS
     Route: 058
     Dates: start: 20250321
  3. Xiaoyao [Concomitant]
     Route: 065
  4. Xiaoyao [Concomitant]

REACTIONS (2)
  - Hyperthyroidism [Unknown]
  - Blood thyroid stimulating hormone decreased [Unknown]

NARRATIVE: CASE EVENT DATE: 20250627
